FAERS Safety Report 9685958 (Version 2)
Quarter: 2013Q4

REPORT INFORMATION
  Report Type: Spontaneous
  Country: US (occurrence: US)
  Receive Date: 20131113
  Receipt Date: 20131113
  Transmission Date: 20140711
  Serious: No
  Sender: FDA-Public Use
  Company Number: US-ALLERGAN-1311638US

PATIENT
  Age: 73 Year
  Sex: Male

DRUGS (3)
  1. COMBIGAN[R] [Suspect]
     Indication: INTRAOCULAR PRESSURE INCREASED
     Dosage: 1 GTT, BID
     Route: 047
     Dates: start: 201307
  2. PREDNISOLONE ACETATE [Concomitant]
     Indication: PRODUCT USED FOR UNKNOWN INDICATION
     Dosage: UNK
  3. ACYCLOVIR                          /00587301/ [Concomitant]
     Indication: HERPES ZOSTER
     Dosage: 400 MG, UNK
     Route: 048

REACTIONS (3)
  - Eyelid ptosis [Recovering/Resolving]
  - Scleral hyperaemia [Recovering/Resolving]
  - Erythema of eyelid [Recovering/Resolving]
